FAERS Safety Report 15494290 (Version 2)
Quarter: 2018Q4

REPORT INFORMATION
  Report Type: Spontaneous
  Country: FR (occurrence: FR)
  Receive Date: 20181012
  Receipt Date: 20181113
  Transmission Date: 20190205
  Serious: Yes (Other)
  Sender: FDA-Public Use
  Company Number: FR-ASTRAZENECA-2018SF31870

PATIENT
  Sex: Male
  Weight: 110 kg

DRUGS (6)
  1. BRILIQUE [Suspect]
     Active Substance: TICAGRELOR
     Indication: STENT PLACEMENT
     Route: 048
     Dates: start: 20180704, end: 20180717
  2. BISOPROLOL [Concomitant]
     Active Substance: BISOPROLOL
  3. KARDEGIC [Concomitant]
     Active Substance: ASPIRIN DL-LYSINE
  4. BRILIQUE [Suspect]
     Active Substance: TICAGRELOR
     Indication: ACUTE CORONARY SYNDROME
     Route: 048
     Dates: start: 20180704, end: 20180717
  5. SIMVASTATIN. [Concomitant]
     Active Substance: SIMVASTATIN
  6. METFORMIN [Concomitant]
     Active Substance: METFORMIN HYDROCHLORIDE

REACTIONS (1)
  - Sleep apnoea syndrome [Recovering/Resolving]
